FAERS Safety Report 10221677 (Version 1)
Quarter: 2014Q2

REPORT INFORMATION
  Report Type: Spontaneous
  Country: US (occurrence: US)
  Receive Date: 20140606
  Receipt Date: 20140606
  Transmission Date: 20141212
  Serious: No
  Sender: FDA-Public Use
  Company Number: US-PFIZER INC-2014153583

PATIENT
  Age: 75 Year
  Sex: Female
  Weight: 77.1 kg

DRUGS (6)
  1. CORTISONE ACETATE [Suspect]
     Indication: BACK PAIN
     Dosage: UNK
  2. CORTISONE ACETATE [Suspect]
     Indication: ARTHRALGIA
  3. ETODOLAC [Suspect]
     Indication: BACK PAIN
     Dosage: 400 MG, 2X/DAY
     Route: 048
  4. ETODOLAC [Suspect]
     Indication: ARTHRALGIA
  5. ADVIL [Suspect]
     Indication: BACK PAIN
     Dosage: UNK
  6. ADVIL [Suspect]
     Indication: ARTHRALGIA

REACTIONS (2)
  - Blood pressure increased [Unknown]
  - Drug ineffective [Unknown]
